FAERS Safety Report 7267175-0 (Version None)
Quarter: 2011Q1

REPORT INFORMATION
  Report Type: 
  Country: None (occurrence: None)
  Receive Date: 20110201
  Receipt Date: 20110124
  Transmission Date: 20110831
  Serious: Yes (Other)
  Sender: FDA-Public Use
  Company Number: US-RB-019449-11

PATIENT
  Age: 85 Year
  Sex: Female

DRUGS (5)
  1. PLAVIX [Concomitant]
  2. MUCINEX [Suspect]
     Route: 048
  3. MUCINEX [Suspect]
     Dosage: ONE TABLET PER DOSE
     Route: 048
  4. CRESTOR [Concomitant]
  5. ASPIRIN [Concomitant]
     Dosage: DOSE TAKEN ONCE DAILY

REACTIONS (2)
  - COUGH [None]
  - EPISTAXIS [None]
